FAERS Safety Report 6979328-7 (Version None)
Quarter: 2010Q3

REPORT INFORMATION
  Report Type: 
  Country: None (occurrence: None)
  Receive Date: 20100913
  Receipt Date: 20100831
  Transmission Date: 20110219
  Serious: Yes (Life-Threatening, Hospitalization, Other)
  Sender: FDA-Public Use
  Company Number: US-BAYER-US-2007-038587

PATIENT
  Age: 37 Year
  Sex: Female
  Weight: 55 kg

DRUGS (8)
  1. YASMIN [Suspect]
     Indication: ORAL CONTRACEPTION
     Route: 048
     Dates: start: 20070301, end: 20070801
  2. PLAVIX [Concomitant]
     Route: 065
     Dates: start: 20070828
  3. METOPROLOL TARTRATE [Concomitant]
     Route: 048
     Dates: start: 20070828
  4. NITROGLYCERIN [Concomitant]
     Route: 065
     Dates: start: 20070828
  5. MEPERIDINE/ PROMETH [Concomitant]
     Route: 048
     Dates: start: 20070720
  6. NEXIUM [Concomitant]
     Indication: PROPHYLAXIS
     Dates: start: 20070801
  7. LIPITOR [Concomitant]
     Route: 065
     Dates: start: 20070801
  8. LISINOPRIL [Concomitant]
     Route: 065
     Dates: start: 20070801

REACTIONS (2)
  - CHEST PAIN [None]
  - MYOCARDIAL INFARCTION [None]
